FAERS Safety Report 13779962 (Version 1)
Quarter: 2017Q3

REPORT INFORMATION
  Report Type: Spontaneous
  Country: US (occurrence: US)
  Receive Date: 20170723
  Receipt Date: 20170723
  Transmission Date: 20171127
  Serious: Yes (Death, Hospitalization)
  Sender: FDA-Public Use
  Company Number: US-ACELLA PHARMACEUTICALS, LLC-2023651

PATIENT
  Age: 60 Year
  Sex: Female

DRUGS (2)
  1. BROMPHENIRAMINE MAL, PSEUDOEPHEDRINE HCL, AND DEXTROMETHORPHAN HBR [Suspect]
     Active Substance: BROMPHENIRAMINE MALEATE\DEXTROMETHORPHAN HYDROBROMIDE\PSEUDOEPHEDRINE HYDROCHLORIDE
     Indication: PRODUCT USED FOR UNKNOWN INDICATION
     Route: 065
  2. QUINIDINE GLUCONATE. [Suspect]
     Active Substance: QUINIDINE GLUCONATE
     Route: 065

REACTIONS (2)
  - Ochronosis [Not Recovered/Not Resolved]
  - Methaemoglobinaemia [Not Recovered/Not Resolved]
